FAERS Safety Report 12947709 (Version 2)
Quarter: 2016Q4

REPORT INFORMATION
  Report Type: Spontaneous
  Country: AU (occurrence: AU)
  Receive Date: 20161116
  Receipt Date: 20161121
  Transmission Date: 20170207
  Serious: Yes (Death, Other)
  Sender: FDA-Public Use
  Company Number: AU-JNJFOC-20161108458

PATIENT
  Age: 47 Year
  Sex: Male

DRUGS (1)
  1. STELARA [Suspect]
     Active Substance: USTEKINUMAB
     Indication: PSORIASIS
     Route: 058

REACTIONS (10)
  - Death [Fatal]
  - Feeling abnormal [Unknown]
  - Pain [Unknown]
  - Amnesia [Unknown]
  - Blood iron increased [Unknown]
  - Sudden onset of sleep [Unknown]
  - Road traffic accident [Unknown]
  - Depression [Unknown]
  - Drooling [Unknown]
  - Gait disturbance [Unknown]

NARRATIVE: CASE EVENT DATE: 201609
